FAERS Safety Report 23055734 (Version 1)
Quarter: 2023Q4

REPORT INFORMATION
  Report Type: Spontaneous
  Country: FR (occurrence: FR)
  Receive Date: 20231011
  Receipt Date: 20231011
  Transmission Date: 20240109
  Serious: Yes (Hospitalization, Other)
  Sender: FDA-Public Use
  Company Number: FR-AFSSAPS-SE2023000545

PATIENT
  Age: 71 Year
  Sex: Male
  Weight: 79 kg

DRUGS (3)
  1. LENALIDOMIDE [Suspect]
     Active Substance: LENALIDOMIDE
     Indication: Plasma cell myeloma
     Dosage: FROM D1 TO D21
     Route: 048
     Dates: start: 20230601, end: 20230612
  2. BORTEZOMIB [Suspect]
     Active Substance: BORTEZOMIB
     Indication: Plasma cell myeloma
     Dosage: DARA-VCD TREATMENT: 1.3 MG/M? ON D1, D8, D15 AND D22 DARA-VRD TREATMENT: 1.3 MG/M2 ON D1, D5, D8 AND
     Route: 058
     Dates: start: 20230406, end: 20230612
  3. DARZALEX [Suspect]
     Active Substance: DARATUMUMAB
     Indication: Plasma cell myeloma
     Dosage: ON D1, D8, D15 AND D22 1DOSE/1CYCLIC
     Route: 058
     Dates: start: 20230406, end: 20230612

REACTIONS (1)
  - Thrombotic microangiopathy [Not Recovered/Not Resolved]

NARRATIVE: CASE EVENT DATE: 20230613
